FAERS Safety Report 9753673 (Version 2)
Quarter: 2014Q2

REPORT INFORMATION
  Report Type: Report from Study
  Country: DE (occurrence: DE)
  Receive Date: 20131213
  Receipt Date: 20140415
  Transmission Date: 20141212
  Serious: Yes (Hospitalization)
  Sender: FDA-Public Use
  Company Number: DE-ABBVIE-13P-062-1177762-00

PATIENT
  Sex: Male

DRUGS (3)
  1. HUMIRA [Suspect]
     Indication: CROHN^S DISEASE
     Route: 058
     Dates: start: 20120712, end: 20130905
  2. HUMIRA [Suspect]
     Route: 058
     Dates: start: 2014
  3. SULFASALAZINE [Concomitant]
     Indication: CROHN^S DISEASE

REACTIONS (3)
  - Intestinal fistula [Recovering/Resolving]
  - Crohn^s disease [Recovering/Resolving]
  - Crohn^s disease [Unknown]
